FAERS Safety Report 24971009 (Version 2)
Quarter: 2025Q1

REPORT INFORMATION
  Report Type: Report from Study
  Country: CA (occurrence: CA)
  Receive Date: 20250214
  Receipt Date: 20250312
  Transmission Date: 20250409
  Serious: Yes (Other)
  Sender: NOVARTIS
  Company Number: CA-002147023-NVSC2024CA182761

PATIENT
  Age: 74 Year
  Sex: Female
  Weight: 67.27 kg

DRUGS (3)
  1. LEQVIO [Suspect]
     Active Substance: INCLISIRAN SODIUM
     Indication: Dyslipidaemia
     Route: 058
     Dates: start: 20240530
  2. LEQVIO [Suspect]
     Active Substance: INCLISIRAN SODIUM
     Route: 058
     Dates: start: 20240830
  3. LEQVIO [Suspect]
     Active Substance: INCLISIRAN SODIUM
     Route: 058
     Dates: start: 20241121

REACTIONS (15)
  - Hypersensitivity [Unknown]
  - Cellulitis [Not Recovered/Not Resolved]
  - Low density lipoprotein increased [Not Recovered/Not Resolved]
  - Lipids increased [Unknown]
  - Injection site swelling [Unknown]
  - Injection site cellulitis [Recovered/Resolved]
  - Injection site infection [Unknown]
  - Injection site rash [Unknown]
  - Decreased immune responsiveness [Unknown]
  - Wrong technique in product usage process [Unknown]
  - Blood cholesterol increased [Unknown]
  - Non-high-density lipoprotein cholesterol increased [Unknown]
  - Injection site erythema [Unknown]
  - Abdominal distension [Unknown]
  - Chest pain [Unknown]

NARRATIVE: CASE EVENT DATE: 20240530
